FAERS Safety Report 5441641-2 (Version None)
Quarter: 2007Q3

REPORT INFORMATION
  Report Type: 
  Country: None (occurrence: None)
  Receive Date: 20070904
  Receipt Date: 20070829
  Transmission Date: 20080115
  Serious: Yes (Hospitalization)
  Sender: FDA-Public Use
  Company Number: FR-AVENTIS-200712763FR

PATIENT
  Age: 10 Year
  Sex: Male

DRUGS (7)
  1. FLAGYL [Suspect]
     Indication: AMOEBIASIS
     Route: 048
     Dates: start: 20060813, end: 20060816
  2. FLAGYL [Suspect]
     Route: 042
     Dates: start: 20060816, end: 20060828
  3. NUBAIN                             /00534802/ [Concomitant]
     Dates: start: 20060818
  4. PERFALGAN [Concomitant]
     Dates: start: 20060818
  5. MOPRAL [Concomitant]
     Dates: start: 20060818
  6. VOGALENE [Concomitant]
     Dates: start: 20060818
  7. ZOPHREN                            /00955301/ [Concomitant]
     Dates: start: 20060818

REACTIONS (1)
  - PANCREATITIS [None]
